FAERS Safety Report 21364052 (Version 1)
Quarter: 2022Q3

REPORT INFORMATION
  Report Type: Spontaneous
  Country: CN (occurrence: None)
  Receive Date: 20220922
  Receipt Date: 20220922
  Transmission Date: 20221027
  Serious: Yes (Other)
  Sender: FDA-Public Use
  Company Number: CN-ROCHE-3179419

PATIENT
  Age: 55 Year
  Sex: Male

DRUGS (5)
  1. GAZYVA [Suspect]
     Active Substance: OBINUTUZUMAB
     Indication: Follicular lymphoma
     Dosage: CYCLE 1: 14/DEC/2021, DAY 1, DAY 8, DAY 15; CYCLES 2-8: 20/JAN/2022, 11/FEB/2022, 12/MAR/2022, 12/AP
     Route: 042
     Dates: start: 20211214, end: 20211214
  2. CYCLOPHOSPHAMIDE [Concomitant]
     Active Substance: CYCLOPHOSPHAMIDE
     Indication: Follicular lymphoma
     Dosage: CYCLE 1: 0.6G,14/DEC/2021, DAY 1; CYCLES 2-8: 1.3G, 20/JAN/2022, 11/FEB/2022, 12/MAR/2022, 12/APR/20
     Dates: start: 20211214, end: 20211214
  3. DOXORUBICIN [Concomitant]
     Active Substance: DOXORUBICIN
     Indication: Follicular lymphoma
     Dosage: 14/DEC/2021, 20/JAN/2022, 11/FEB/2022, 12/MAR/2022, 12/APR/2022, 06/MAY/2022, 27/MAY/2022 AND 22/JUN
     Dates: start: 20211214, end: 20211214
  4. VINDESINE [Concomitant]
     Active Substance: VINDESINE
     Indication: Follicular lymphoma
     Dosage: 14/DEC/2021, 20/JAN/2022, 11/FEB/2022, 12/MAR/2022, 12/APR/2022, 06/MAY/2022, 27/MAY/2022 AND 22/JUN
     Dates: start: 20211214, end: 20211214
  5. DEXAMETHASONE [Concomitant]
     Active Substance: DEXAMETHASONE
     Indication: Follicular lymphoma
     Dosage: 14/DEC/2021, 20/JAN/2022, 11/FEB/2022, 12/MAR/2022, 12/APR/2022, 06/MAY/2022, 27/MAY/2022 AND 22/JUN
     Dates: start: 20211214, end: 20211214

REACTIONS (3)
  - Venous thrombosis limb [Unknown]
  - Acute lymphocytic leukaemia [Unknown]
  - Burkitt^s lymphoma [Unknown]
